FAERS Safety Report 8978547 (Version 1)
Quarter: 2012Q4

REPORT INFORMATION
  Report Type: 
  Country: US (occurrence: US)
  Receive Date: 20121220
  Receipt Date: 20121220
  Transmission Date: 20130627
  Serious: No
  Sender: FDA-Public Use
  Company Number: US-PFIZER INC-2012320316

PATIENT
  Weight: 49 kg

DRUGS (2)
  1. ZITHROMAX [Suspect]
     Dosage: 200 mg, (5ml)
  2. ZITHROMAX [Suspect]
     Dosage: 1.25 ml, 2x/day (10 days)

REACTIONS (2)
  - Drug ineffective [Unknown]
  - Drug prescribing error [Unknown]
